FAERS Safety Report 7843413-8 (Version None)
Quarter: 2011Q4

REPORT INFORMATION
  Report Type: 
  Country: None (occurrence: None)
  Receive Date: 20111018
  Receipt Date: 20111004
  Transmission Date: 20120403
  Serious: Yes (Disabling, Other)
  Sender: FDA-Public Use
  Company Number: RU-1188348

PATIENT
  Sex: Female

DRUGS (3)
  1. PICAMILON [Concomitant]
  2. TRAVATAN [Suspect]
     Indication: GLAUCOMA
     Dosage: 1 GTT QD OPHTHALMIC
     Route: 047
  3. OPTIC [Concomitant]

REACTIONS (7)
  - HALLUCINATION, AUDITORY [None]
  - IRRITABILITY [None]
  - DEAFNESS [None]
  - TINNITUS [None]
  - MUSCLE SPASMS [None]
  - INSOMNIA [None]
  - ABNORMAL BEHAVIOUR [None]
